FAERS Safety Report 9554369 (Version 1)
Quarter: 2013Q3

REPORT INFORMATION
  Report Type: Spontaneous
  Country: US (occurrence: US)
  Receive Date: 20130925
  Receipt Date: 20130925
  Transmission Date: 20140515
  Serious: No
  Sender: FDA-Public Use
  Company Number: US-MYLANLABS-2013S1013498

PATIENT
  Sex: Male

DRUGS (5)
  1. FUROSEMIDE TABLETS, USP [Suspect]
  2. ACETAMINOPHEN [Suspect]
  3. PROMETHAZINE [Suspect]
  4. HYDROCODONE [Concomitant]
     Indication: PAIN
  5. ACETAMINOPHEN W/OXYCODONE [Concomitant]
     Dosage: 5MG/325MG

REACTIONS (2)
  - Wrong drug administered [Recovered/Resolved]
  - Victim of crime [Recovered/Resolved]
